FAERS Safety Report 6741791-4 (Version None)
Quarter: 2010Q2

REPORT INFORMATION
  Report Type: 
  Country: None (occurrence: None)
  Receive Date: 20100524
  Receipt Date: 20100510
  Transmission Date: 20101027
  Serious: Yes (Life-Threatening)
  Sender: FDA-Public Use
  Company Number: 201004AGG00925

PATIENT
  Age: 71 Year
  Sex: Female

DRUGS (4)
  1. TIROFIBAN HYDROCHLORIDE (AGGRASTAT (TIROFIBAN HCI) ) [Suspect]
     Indication: ACUTE CORONARY SYNDROME
     Dosage: INTRAVENOUS (NOT OTHERWISE SPECIFIED)
     Route: 042
     Dates: start: 20090321, end: 20090321
  2. ENOXAPARIN SODIUM [Suspect]
     Dosage: INTRAVENOUS (NOT OTHERWISE SPECIFIED)
     Route: 042
  3. CLOPIDOGREL BISULFATE [Suspect]
  4. ASPIRIN [Concomitant]

REACTIONS (9)
  - HAEMOGLOBIN DECREASED [None]
  - HYPOTENSION [None]
  - HYPOXIA [None]
  - LEFT VENTRICULAR FAILURE [None]
  - PETECHIAE [None]
  - PLATELET COUNT DECREASED [None]
  - PULMONARY ALVEOLAR HAEMORRHAGE [None]
  - RESPIRATORY FAILURE [None]
  - THROMBOSIS IN DEVICE [None]
